FAERS Safety Report 24136669 (Version 1)
Quarter: 2024Q3

REPORT INFORMATION
  Report Type: Report from Study
  Country: ES (occurrence: ES)
  Receive Date: 20240725
  Receipt Date: 20240725
  Transmission Date: 20241016
  Serious: Yes (Hospitalization)
  Sender: MYLAN
  Company Number: None

PATIENT
  Age: 72 Year
  Sex: Male

DRUGS (3)
  1. CLOZAPINE [Interacting]
     Active Substance: CLOZAPINE
     Indication: Product used for unknown indication
     Dosage: 100 MILLIGRAM, QD
     Route: 048
     Dates: start: 20240130
  2. LITHIUM CARBONATE [Interacting]
     Active Substance: LITHIUM CARBONATE
     Indication: Product used for unknown indication
     Dosage: UNK
     Route: 065
     Dates: start: 20141025
  3. VALPROIC ACID [Concomitant]
     Active Substance: VALPROIC ACID
     Dosage: UNK
     Route: 065
     Dates: start: 20240130

REACTIONS (2)
  - Neuroleptic malignant syndrome [Recovered/Resolved]
  - Drug interaction [Unknown]

NARRATIVE: CASE EVENT DATE: 20240212
